FAERS Safety Report 21619509 (Version 1)
Quarter: 2022Q4

REPORT INFORMATION
  Report Type: Spontaneous
  Country: FR (occurrence: FR)
  Receive Date: 20221121
  Receipt Date: 20221121
  Transmission Date: 20230113
  Serious: Yes (Hospitalization)
  Sender: FDA-Public Use
  Company Number: FR-AFSSAPS-AN20222286

PATIENT
  Age: 63 Year
  Sex: Female
  Weight: 120 kg

DRUGS (3)
  1. PERINDOPRIL [Suspect]
     Active Substance: PERINDOPRIL
     Indication: Hypertension
     Dosage: UNK
     Route: 048
  2. FENOFIBRATE [Suspect]
     Active Substance: FENOFIBRATE
     Indication: Product used for unknown indication
     Dosage: UNK
     Route: 048
  3. WEGOVY [Suspect]
     Active Substance: SEMAGLUTIDE
     Indication: Obesity
     Dosage: 1 DOSAGE FORM, 1/WEEK
     Route: 058
     Dates: start: 20220627

REACTIONS (1)
  - Renal colic [Recovered/Resolved]

NARRATIVE: CASE EVENT DATE: 20221002
